FAERS Safety Report 9826429 (Version 1)
Quarter: 2013Q4

REPORT INFORMATION
  Report Type: Spontaneous
  Country: GB (occurrence: None)
  Receive Date: 20131112
  Receipt Date: 20131112
  Transmission Date: 20140711
  Serious: No
  Sender: FDA-Public Use
  Company Number: 2013-00144

PATIENT
  Sex: 0

DRUGS (8)
  1. LISINOPRIL (UNKNOWN) (LISINOPRIL) [Suspect]
     Indication: HYPERTENSION
     Route: 048
     Dates: start: 20120705, end: 20130113
  2. ENOXAPARIN + ENOXAPARIN SODIUM +SODIUM ENOXAPARIN (CLEXANE) [Concomitant]
  3. FLUOXETINE [Concomitant]
  4. GABAPENTIN [Concomitant]
  5. MORPHINE (MORPHINE SULPHATE) [Concomitant]
  6. OMEPRAZOLE [Concomitant]
  7. PARACETAMOL [Concomitant]
  8. MORPHINE SULPHATE (ZOMORPH) [Concomitant]

REACTIONS (4)
  - Renal failure acute [None]
  - Diarrhoea [None]
  - Blood creatinine increased [None]
  - Blood urea increased [None]
